FAERS Safety Report 18538644 (Version 2)
Quarter: 2021Q1

REPORT INFORMATION
  Report Type: Report from Study
  Country: None (occurrence: DE)
  Receive Date: 20201123
  Receipt Date: 20210120
  Transmission Date: 20210419
  Serious: Yes (Hospitalization)
  Sender: FDA-Public Use
  Company Number: DE-ABBVIE-20K-062-3658997-00

PATIENT
  Sex: Female
  Weight: 104 kg

DRUGS (2)
  1. MTX [Concomitant]
     Active Substance: METHOTREXATE SODIUM
     Indication: PRODUCT USED FOR UNKNOWN INDICATION
  2. RINVOQ [Suspect]
     Active Substance: UPADACITINIB
     Indication: POLYARTHRITIS
     Route: 048
     Dates: start: 20200811

REACTIONS (3)
  - Mobility decreased [Unknown]
  - Pain [Unknown]
  - Arthralgia [Recovered/Resolved]
